FAERS Safety Report 17536595 (Version 2)
Quarter: 2020Q1

REPORT INFORMATION
  Report Type: Spontaneous
  Country: US (occurrence: US)
  Receive Date: 20200313
  Receipt Date: 20200319
  Transmission Date: 20200409
  Serious: No
  Sender: FDA-Public Use
  Company Number: US-AMGEN-USASP2020040685

PATIENT
  Age: 83 Year
  Sex: Female

DRUGS (1)
  1. EVENITY [Suspect]
     Active Substance: ROMOSOZUMAB-AQQG
     Indication: OSTEOPOROSIS
     Dosage: UNK
     Route: 065
     Dates: start: 20200225

REACTIONS (11)
  - Sciatica [Not Recovered/Not Resolved]
  - Pain [Not Recovered/Not Resolved]
  - Headache [Unknown]
  - Musculoskeletal chest pain [Not Recovered/Not Resolved]
  - Rash pruritic [Not Recovered/Not Resolved]
  - Urinary incontinence [Not Recovered/Not Resolved]
  - Back pain [Not Recovered/Not Resolved]
  - Lymphoedema [Not Recovered/Not Resolved]
  - Arthralgia [Unknown]
  - Bone pain [Unknown]
  - Frequent bowel movements [Not Recovered/Not Resolved]

NARRATIVE: CASE EVENT DATE: 2020
